FAERS Safety Report 5382327-2 (Version None)
Quarter: 2007Q3

REPORT INFORMATION
  Report Type: 
  Country: None (occurrence: None)
  Receive Date: 20070709
  Receipt Date: 20070704
  Transmission Date: 20080115
  Serious: Yes (Death)
  Sender: FDA-Public Use
  Company Number: CA-BOEHRINGER INGELHEIM PHARMACEUTICALS, INC.-2007-DE-03815GD

PATIENT
  Age: 15 Month
  Sex: Female

DRUGS (12)
  1. MORPHINE [Suspect]
     Indication: PAIN
     Route: 051
  2. RANITIDINE [Suspect]
     Indication: PRURITUS
  3. CODEINE SUL TAB [Suspect]
     Indication: PAIN
     Dosage: 1MG/KG
  4. HYDROMORPHONE HCL [Suspect]
     Indication: PAIN
     Route: 042
  5. LORAZEPAM [Suspect]
     Indication: PAIN
     Dosage: 0.05MG/KG EVERY 6 HOURS
  6. NALOXONE [Suspect]
     Indication: PRURITUS
  7. TRICYCLIC ANTIDEPRESSANT [Suspect]
     Indication: PRURITUS
  8. PARACETAMOL [Concomitant]
     Indication: PAIN
  9. FENTANYL [Concomitant]
     Indication: PAIN
     Dosage: 2.5 MCG/KG/H WITH BREAKTHROUGHS
  10. METHOTRIMEPRAZINE [Concomitant]
     Indication: PAIN
     Dosage: 0.5 MG/KG/H WITH BREAKTHROUGHS
  11. DIPHENHYDRAMINE HCL [Concomitant]
  12. ANTICHOLINERGIC [Concomitant]
     Indication: SECRETION DISCHARGE

REACTIONS (5)
  - ACUTE RESPIRATORY FAILURE [None]
  - CARDIAC FAILURE [None]
  - DISEASE PROGRESSION [None]
  - DRUG INEFFECTIVE [None]
  - PRURITUS [None]
